FAERS Safety Report 12493238 (Version 1)
Quarter: 2016Q2

REPORT INFORMATION
  Report Type: Spontaneous
  Country: US (occurrence: US)
  Receive Date: 20160623
  Receipt Date: 20160623
  Transmission Date: 20160815
  Serious: No
  Sender: FDA-Public Use
  Company Number: US-BAYER-2016-122034

PATIENT
  Age: 79 Year
  Sex: Female
  Weight: 59.86 kg

DRUGS (2)
  1. MIRALAX [Suspect]
     Active Substance: POLYETHYLENE GLYCOL 3350
     Indication: INTESTINAL OBSTRUCTION
     Dosage: 1 DF, QD
     Route: 048
     Dates: start: 201605
  2. INSULIN [Concomitant]
     Active Substance: INSULIN NOS

REACTIONS (3)
  - Off label use [None]
  - Product use issue [None]
  - Flatulence [Not Recovered/Not Resolved]

NARRATIVE: CASE EVENT DATE: 201605
